FAERS Safety Report 12370318 (Version 3)
Quarter: 2016Q2

REPORT INFORMATION
  Report Type: Report from Study
  Country: AE (occurrence: AE)
  Receive Date: 20160516
  Receipt Date: 20160608
  Transmission Date: 20160815
  Serious: Yes (Hospitalization)
  Sender: FDA-Public Use
  Company Number: AE-ABBVIE-16K-166-1545545-00

PATIENT
  Age: 38 Year
  Sex: Female

DRUGS (6)
  1. HUMIRA [Suspect]
     Active Substance: ADALIMUMAB
     Indication: CROHN^S DISEASE
     Route: 058
     Dates: start: 201412, end: 20160227
  2. HUMIRA [Suspect]
     Active Substance: ADALIMUMAB
     Route: 058
     Dates: start: 20160525
  3. IRON [Concomitant]
     Active Substance: IRON
     Indication: PREGNANCY
     Route: 048
     Dates: start: 201512
  4. CALCIUM [Concomitant]
     Active Substance: CALCIUM
     Indication: PREGNANCY
     Route: 048
     Dates: start: 201512
  5. FOLIC ACID. [Concomitant]
     Active Substance: FOLIC ACID
     Indication: PREGNANCY
     Route: 048
     Dates: start: 201512
  6. IMURAN [Concomitant]
     Active Substance: AZATHIOPRINE
     Indication: CROHN^S DISEASE
     Route: 048
     Dates: start: 2014, end: 201601

REACTIONS (5)
  - Postpartum haemorrhage [Recovered/Resolved]
  - Haemorrhage in pregnancy [Unknown]
  - Uterine contractions abnormal [Recovered/Resolved]
  - Exposure during pregnancy [Unknown]
  - Live birth [Unknown]

NARRATIVE: CASE EVENT DATE: 201510
